FAERS Safety Report 8961259 (Version 1)
Quarter: 2012Q4

REPORT INFORMATION
  Report Type: 
  Country: US (occurrence: US)
  Receive Date: 20121212
  Receipt Date: 20121212
  Transmission Date: 20130627
  Serious: Yes (Hospitalization)
  Sender: FDA-Public Use
  Company Number: US-ACTELION-A-CH2012-75919

PATIENT
  Age: 39 Year
  Sex: Female

DRUGS (2)
  1. TRACLEER [Suspect]
     Indication: RAYNAUD^S PHENOMENON
     Dosage: UNK
     Route: 048
     Dates: start: 2005
  2. VERAPAMIL [Concomitant]
     Dosage: UNK
     Dates: start: 2005

REACTIONS (4)
  - Gastric antral vascular ectasia [Unknown]
  - Anaemia [Unknown]
  - Scleroderma [Unknown]
  - Disease progression [Unknown]
